FAERS Safety Report 9785351 (Version 1)
Quarter: 2013Q4

REPORT INFORMATION
  Report Type: Spontaneous
  Country: US (occurrence: None)
  Receive Date: 20131226
  Receipt Date: 20131226
  Transmission Date: 20140711
  Serious: Yes (Disabling)
  Sender: FDA-Public Use
  Company Number: None

PATIENT
  Age: 84 Year
  Sex: Female
  Weight: 68.04 kg

DRUGS (4)
  1. LIALDA [Suspect]
     Indication: COLITIS ULCERATIVE
     Route: 048
     Dates: start: 20130801, end: 20131028
  2. VITAMANS [Concomitant]
  3. BABY ASPIRIN [Concomitant]
  4. VITAMIN D [Concomitant]

REACTIONS (14)
  - Influenza [None]
  - Nausea [None]
  - Pyrexia [None]
  - Oropharyngeal pain [None]
  - Dysphonia [None]
  - Fatigue [None]
  - Muscle spasms [None]
  - Flatulence [None]
  - Faeces discoloured [None]
  - Weight decreased [None]
  - Frequent bowel movements [None]
  - Malaise [None]
  - Activities of daily living impaired [None]
  - Pain in extremity [None]
